FAERS Safety Report 6012181-7 (Version None)
Quarter: 2008Q4

REPORT INFORMATION
  Report Type: 
  Country: None (occurrence: None)
  Receive Date: 20081218
  Receipt Date: 20080912
  Transmission Date: 20090506
  Serious: No
  Sender: FDA-Public Use
  Company Number: US-ASTRAZENECA-2008UW19036

PATIENT
  Age: 72 Year
  Sex: Female
  Weight: 89.4 kg

DRUGS (4)
  1. CRESTOR [Suspect]
     Indication: BLOOD CHOLESTEROL INCREASED
     Route: 048
     Dates: start: 20080501
  2. MICARDIS [Concomitant]
  3. ASPIRIN [Concomitant]
  4. BREATHING MEDICATION [Concomitant]
     Indication: RESPIRATORY DISORDER

REACTIONS (2)
  - DRY MOUTH [None]
  - FEELING ABNORMAL [None]
